FAERS Safety Report 10132695 (Version 2)
Quarter: 2014Q2

REPORT INFORMATION
  Report Type: Spontaneous
  Country: US (occurrence: US)
  Receive Date: 20140428
  Receipt Date: 20140428
  Transmission Date: 20141212
  Serious: No
  Sender: FDA-Public Use
  Company Number: US-MALLINCKRODT-T201401373

PATIENT
  Age: 67 Year
  Sex: Female

DRUGS (3)
  1. HYDROCODONE/ACETAMINOPHEN [Suspect]
     Indication: MULTIPLE SCLEROSIS
     Dosage: 10/325 MG, 1/2 TAB
     Route: 048
     Dates: start: 20140217, end: 20140217
  2. HYDROCODONE/ACETAMINOPHEN [Suspect]
     Indication: BACK PAIN
  3. ASPIRIN [Concomitant]
     Indication: PROPHYLAXIS
     Dosage: 81 MG, Q HS

REACTIONS (6)
  - Dysgeusia [Recovered/Resolved]
  - Joint range of motion decreased [Recovered/Resolved]
  - Drug effect increased [Recovered/Resolved]
  - Fatigue [Recovered/Resolved]
  - Nausea [Recovered/Resolved]
  - Drug ineffective [Unknown]
